FAERS Safety Report 7010775-3 (Version None)
Quarter: 2010Q3

REPORT INFORMATION
  Report Type: 
  Country: None (occurrence: None)
  Receive Date: 20100923
  Receipt Date: 20100826
  Transmission Date: 20110219
  Serious: No
  Sender: FDA-Public Use
  Company Number: US-PFIZER INC-2010061492

PATIENT
  Sex: Male

DRUGS (6)
  1. ZOLOFT [Suspect]
     Dosage: UNK
  2. CAVERJECT [Interacting]
     Dosage: UNK
  3. DIOVAN HCT [Interacting]
     Dosage: UNK
  4. NEXIUM [Interacting]
     Dosage: UNK
  5. PRILOSEC [Interacting]
     Dosage: UNK
  6. VITAMINS [Interacting]
     Dosage: UNK

REACTIONS (6)
  - DRUG INTERACTION [None]
  - DRY MOUTH [None]
  - HYPERSENSITIVITY [None]
  - LIP DRY [None]
  - ORAL PAIN [None]
  - PRURITUS [None]
